FAERS Safety Report 24142132 (Version 1)
Quarter: 2024Q3

REPORT INFORMATION
  Report Type: Report from Study
  Country: US (occurrence: US)
  Receive Date: 20240726
  Receipt Date: 20240726
  Transmission Date: 20241017
  Serious: Yes (Other)
  Sender: OTSUKA
  Company Number: US-OTSUKA-2024_001220

PATIENT
  Sex: Male
  Weight: 84.82 kg

DRUGS (1)
  1. CEDAZURIDINE\DECITABINE [Suspect]
     Active Substance: CEDAZURIDINE\DECITABINE
     Indication: Myelodysplastic syndrome
     Dosage: 1 DF (35 MG DECITABINE AND 100 MG CEDAZURIDINE), QD (ON DAYS 1-5) OF A 28 DAY CYCLE
     Route: 048
     Dates: start: 20230906

REACTIONS (5)
  - Full blood count abnormal [Recovering/Resolving]
  - Oedema peripheral [Unknown]
  - Muscular weakness [Unknown]
  - Dyspnoea [Unknown]
  - Anaemia [Unknown]
